FAERS Safety Report 5615220-8 (Version None)
Quarter: 2008Q1

REPORT INFORMATION
  Report Type: 
  Country: None (occurrence: None)
  Receive Date: 20080201
  Receipt Date: 20080115
  Transmission Date: 20080703
  Serious: Yes (Hospitalization)
  Sender: FDA-Public Use
  Company Number: 013399

PATIENT
  Age: 82 Year
  Sex: Male
  Weight: 65 kg

DRUGS (10)
  1. PRIALT [Suspect]
     Indication: DRUG USE FOR UNKNOWN INDICATION
     Dosage: 0.006 UG, ONCE/HOUR, INTRATHECAL; 0.125 UG, ONCE/HOUR, INTRATHECAL
     Route: 037
     Dates: start: 20080115
  2. PANTOPRAZOLE SODIUM [Concomitant]
  3. FUROSEMIDE [Concomitant]
  4. TAMSULOSIN HCL [Concomitant]
  5. GABAPENTIN [Concomitant]
  6. MORPHINE [Concomitant]
  7. FLUOXETINE HCL [Concomitant]
  8. ACENOCOUMAROL (ACENOCOUMAROL) [Concomitant]
  9. SOMNUBENE (FLUNITRAZEPAM) [Concomitant]
  10. TAZONAM (PIPERACILLIN SODIUM, TAZOBACTAM SODIUM) [Concomitant]

REACTIONS (2)
  - CIRCULATORY COLLAPSE [None]
  - VENTRICULAR FIBRILLATION [None]
